FAERS Safety Report 5526107-3 (Version None)
Quarter: 2007Q4

REPORT INFORMATION
  Report Type: 
  Country: None (occurrence: None)
  Receive Date: 20071120
  Receipt Date: 20071108
  Transmission Date: 20080405
  Serious: Yes (Hospitalization, Congenital Anomaly)
  Sender: FDA-Public Use
  Company Number: 2007-167320-NL

PATIENT
  Sex: Female

DRUGS (2)
  1. MENOTROPINS [Suspect]
     Dosage: DF
  2. CHORIONIC GONADOTROPIN [Suspect]
     Dosage: DF

REACTIONS (12)
  - CONGENITAL MUSCULOSKELETAL ANOMALY [None]
  - DRUG EXPOSURE DURING PREGNANCY [None]
  - DUODENAL ATRESIA [None]
  - HYDROCEPHALUS [None]
  - INTESTINAL MALROTATION [None]
  - MULTIPLE CONGENITAL ABNORMALITIES [None]
  - OESOPHAGEAL ATRESIA [None]
  - PATENT DUCTUS ARTERIOSUS [None]
  - PREMATURE BABY [None]
  - PREMATURE RUPTURE OF MEMBRANES [None]
  - PYLORIC STENOSIS [None]
  - SMALL FOR DATES BABY [None]
